FAERS Safety Report 14691472 (Version 4)
Quarter: 2019Q2

REPORT INFORMATION
  Report Type: Spontaneous
  Country: US (occurrence: US)
  Receive Date: 20180328
  Receipt Date: 20190423
  Transmission Date: 20190711
  Serious: Yes (Other)
  Sender: FDA-Public Use
  Company Number: US-ASTRAZENECA-2018SE37430

PATIENT
  Age: 668 Month
  Sex: Male
  Weight: 75.8 kg

DRUGS (23)
  1. NEXIUM [Suspect]
     Active Substance: ESOMEPRAZOLE MAGNESIUM
     Indication: GASTROOESOPHAGEAL REFLUX DISEASE
     Route: 048
     Dates: start: 200104, end: 201608
  2. HUMALOG [Concomitant]
     Active Substance: INSULIN LISPRO
  3. FOLIC ACID. [Concomitant]
     Active Substance: FOLIC ACID
  4. AZITHROMYCIN ANHYDROUS. [Concomitant]
     Active Substance: AZITHROMYCIN ANHYDROUS
  5. QUINAPRIL. [Concomitant]
     Active Substance: QUINAPRIL
  6. LANSOPRAZOLE. [Suspect]
     Active Substance: LANSOPRAZOLE
     Indication: GASTROOESOPHAGEAL REFLUX DISEASE
     Route: 065
     Dates: start: 20160814
  7. FLONASE [Concomitant]
     Active Substance: FLUTICASONE PROPIONATE
  8. ROPINIROLE. [Concomitant]
     Active Substance: ROPINIROLE
  9. NEXIUM [Suspect]
     Active Substance: ESOMEPRAZOLE MAGNESIUM
     Indication: GASTROOESOPHAGEAL REFLUX DISEASE
     Route: 048
     Dates: start: 20010409, end: 20151231
  10. PROTONIX [Suspect]
     Active Substance: PANTOPRAZOLE SODIUM
     Indication: GASTROOESOPHAGEAL REFLUX DISEASE
     Dosage: GENERIC ( PANTOPRAZOLE
     Route: 065
     Dates: start: 20160621, end: 20160814
  11. FLUDROCORTISONE ACETATE. [Concomitant]
     Active Substance: FLUDROCORTISONE ACETATE
  12. ASPIRIN. [Concomitant]
     Active Substance: ASPIRIN
  13. ALBUTEROL SULFATE. [Concomitant]
     Active Substance: ALBUTEROL SULFATE
  14. BENADRYL [Concomitant]
     Active Substance: DIPHENHYDRAMINE HYDROCHLORIDE
  15. PLETAL [Concomitant]
     Active Substance: CILOSTAZOL
  16. CLARITIN [Concomitant]
     Active Substance: LORATADINE
  17. SIMVASTATIN. [Concomitant]
     Active Substance: SIMVASTATIN
  18. NEXIUM [Suspect]
     Active Substance: ESOMEPRAZOLE MAGNESIUM
     Indication: GASTROOESOPHAGEAL REFLUX DISEASE
     Route: 048
     Dates: start: 20140204
  19. PROTONIX [Suspect]
     Active Substance: PANTOPRAZOLE SODIUM
     Indication: GASTROOESOPHAGEAL REFLUX DISEASE
     Route: 065
     Dates: start: 200104, end: 201608
  20. NEXIUM [Suspect]
     Active Substance: ESOMEPRAZOLE MAGNESIUM
     Indication: GASTROOESOPHAGEAL REFLUX DISEASE
     Route: 048
     Dates: start: 20010409, end: 20140213
  21. ZOCOR [Concomitant]
     Active Substance: SIMVASTATIN
  22. ACCUPRIL [Concomitant]
     Active Substance: QUINAPRIL HYDROCHLORIDE
  23. NEURONTIN [Concomitant]
     Active Substance: GABAPENTIN

REACTIONS (4)
  - Chronic kidney disease [Unknown]
  - Acute kidney injury [Unknown]
  - Renal injury [Unknown]
  - Renal failure [Unknown]

NARRATIVE: CASE EVENT DATE: 201201
